FAERS Safety Report 19736114 (Version 2)
Quarter: 2021Q3

REPORT INFORMATION
  Report Type: Spontaneous
  Country: US (occurrence: US)
  Receive Date: 20210823
  Receipt Date: 20210831
  Transmission Date: 20211014
  Serious: Yes (Other)
  Sender: FDA-Public Use
  Company Number: US-APOTEX-2021AP035621

PATIENT
  Age: 16 Year
  Sex: Female
  Weight: 91.3 kg

DRUGS (2)
  1. RISPERIDONE ORAL SOLUTION [Suspect]
     Active Substance: RISPERIDONE
     Indication: PSYCHOTHERAPY
     Dosage: 0.5 MILLIGRAM, Q.H.S.
     Route: 065
     Dates: start: 20170405
  2. METHADONE [Suspect]
     Active Substance: METHADONE HYDROCHLORIDE
     Indication: PRODUCT USED FOR UNKNOWN INDICATION
     Dosage: 20 MILLIGRAM, QD
     Route: 065

REACTIONS (4)
  - Drug interaction [Unknown]
  - Hypokalaemia [Unknown]
  - Electrocardiogram QT prolonged [Unknown]
  - Hypocalcaemia [Unknown]

NARRATIVE: CASE EVENT DATE: 20170407
